FAERS Safety Report 19805336 (Version 7)
Quarter: 2023Q1

REPORT INFORMATION
  Report Type: Report from Study
  Country: DE (occurrence: DE)
  Receive Date: 20210908
  Receipt Date: 20230130
  Transmission Date: 20230418
  Serious: Yes (Hospitalization, Other)
  Sender: FDA-Public Use
  Company Number: DE-002147023-NVSC2020DE111602

PATIENT
  Sex: Female
  Weight: 101 kg

DRUGS (4)
  1. LETROZOLE [Suspect]
     Active Substance: LETROZOLE
     Indication: Breast cancer metastatic
     Dosage: 2.5 MILLIGRAM, QD
     Route: 048
     Dates: start: 20200313
  2. KISQALI [Suspect]
     Active Substance: RIBOCICLIB
     Indication: Breast cancer metastatic
     Dosage: 400MG(SCHEMA 21D INTAKE 7D PAUSE)
     Route: 048
     Dates: start: 20200313, end: 20200409
  3. KISQALI [Suspect]
     Active Substance: RIBOCICLIB
     Dosage: 400MG(SCHEMA 21D INTAKE 7D PAUSE)
     Route: 048
     Dates: start: 20200525, end: 20211101
  4. KISQALI [Suspect]
     Active Substance: RIBOCICLIB
     Dosage: 400MG(SCHEMA 21D INTAKE 7D PAUSE)
     Route: 048
     Dates: start: 20211223

REACTIONS (15)
  - Anaemia [Recovering/Resolving]
  - Haematochezia [Recovering/Resolving]
  - Coronavirus test positive [Recovered/Resolved]
  - Neutrophil count decreased [Recovered/Resolved]
  - Onychoclasis [Not Recovered/Not Resolved]
  - COVID-19 [Recovered/Resolved]
  - Pruritus [Recovered/Resolved]
  - Weight decreased [Recovered/Resolved]
  - Decreased appetite [Not Recovered/Not Resolved]
  - Oedema peripheral [Not Recovered/Not Resolved]
  - Arthralgia [Not Recovered/Not Resolved]
  - Alopecia [Not Recovered/Not Resolved]
  - Rash [Recovering/Resolving]
  - Pain in extremity [Not Recovered/Not Resolved]
  - Decubitus ulcer [Recovering/Resolving]

NARRATIVE: CASE EVENT DATE: 20200408
